FAERS Safety Report 4509613-X (Version None)
Quarter: 2004Q4

REPORT INFORMATION
  Report Type: 
  Country: None (occurrence: None)
  Receive Date: 20041124
  Receipt Date: 20041116
  Transmission Date: 20050328
  Serious: Yes (Hospitalization)
  Sender: FDA-Public Use
  Company Number: PHRM2004FR03350

PATIENT
  Age: 40 Year
  Sex: Male
  Weight: 84 kg

DRUGS (1)
  1. LAMISIL [Suspect]
     Indication: INTERTRIGO CANDIDA
     Dosage: 250 MG, QD
     Route: 048
     Dates: start: 20021015, end: 20030815

REACTIONS (7)
  - ACTIVATED PROTEIN C RESISTANCE [None]
  - AUTOIMMUNE DISORDER [None]
  - CARDIOLIPIN ANTIBODY [None]
  - DIALYSIS [None]
  - RENAL FAILURE CHRONIC [None]
  - VOMITING [None]
  - WEIGHT INCREASED [None]
